FAERS Safety Report 9305669 (Version 1)
Quarter: 2013Q2

REPORT INFORMATION
  Report Type: Spontaneous
  Country: US (occurrence: US)
  Receive Date: 20130523
  Receipt Date: 20130523
  Transmission Date: 20140414
  Serious: No
  Sender: FDA-Public Use
  Company Number: US-B.I. PHARMACEUTICALS,INC./RIDGEFIELD-2013-BI-14281BP

PATIENT
  Age: 69 Year
  Sex: Female
  Weight: 126 kg

DRUGS (4)
  1. PRADAXA [Suspect]
     Indication: ATRIAL FIBRILLATION
     Dosage: 300 MG
     Route: 048
     Dates: start: 201210
  2. TRIAMTERENE HCTZ [Concomitant]
     Indication: HYPERTENSION
     Dosage: STRENGTH: 5/25 MG; DAILY DOSE: 5/25 MG
     Route: 048
  3. BYSTOLIC [Concomitant]
     Indication: ATRIAL FIBRILLATION
     Route: 048
  4. LOTREL [Concomitant]
     Indication: HYPERTENSION
     Dosage: STRENGTH: 5/20 MG; DAILY DOSE: 5/20 MG
     Route: 048

REACTIONS (2)
  - Agitation [Not Recovered/Not Resolved]
  - Crying [Not Recovered/Not Resolved]
